FAERS Safety Report 4661362-3 (Version None)
Quarter: 2005Q2

REPORT INFORMATION
  Report Type: 
  Country: None (occurrence: None)
  Receive Date: 20050512
  Receipt Date: 20041118
  Transmission Date: 20051028
  Serious: Yes (Life-Threatening, Hospitalization)
  Sender: FDA-Public Use
  Company Number: 05-05-0783

PATIENT
  Age: 67 Year
  Sex: Male
  Weight: 100 kg

DRUGS (10)
  1. METFORMIN HCL [Suspect]
     Indication: DIABETES MELLITUS NON-INSULIN-DEPENDENT
     Dosage: 1G TDS ORAL
     Route: 048
     Dates: end: 20041107
  2. CLOPIDOGREL BISULFATE [Suspect]
     Indication: ACUTE CORONARY SYNDROME
     Dosage: 75MG OD ORAL
     Route: 048
     Dates: end: 20041107
  3. ASPIRIN [Suspect]
     Indication: ACUTE CORONARY SYNDROME
     Dosage: 75MG OD ORAL
     Route: 048
     Dates: end: 20041107
  4. VERAPAMIL [Concomitant]
  5. ATORVASTATIN CALCIUM [Concomitant]
  6. FRUSEMIDE [Concomitant]
  7. IMDUR [Concomitant]
  8. FLIXOTIDE [Concomitant]
  9. SALBUTAMOL [Concomitant]
  10. IPRATROPIUM BROMIDE [Concomitant]

REACTIONS (3)
  - BLOOD POTASSIUM INCREASED [None]
  - GASTROINTESTINAL HAEMORRHAGE [None]
  - LACTIC ACIDOSIS [None]
